FAERS Safety Report 14197849 (Version 2)
Quarter: 2018Q3

REPORT INFORMATION
  Report Type: Spontaneous
  Country: US (occurrence: US)
  Receive Date: 20171117
  Receipt Date: 20180704
  Transmission Date: 20181010
  Serious: No
  Sender: FDA-Public Use
  Company Number: US-GLENMARK PHARMACEUTICALS-2017GMK029042

PATIENT

DRUGS (1)
  1. DESOXIMETASONE. [Suspect]
     Active Substance: DESOXIMETASONE
     Indication: PRODUCT USED FOR UNKNOWN INDICATION
     Dosage: UNK
     Route: 067
     Dates: start: 20170914, end: 20170917

REACTIONS (3)
  - Vulvovaginal discomfort [Not Recovered/Not Resolved]
  - Product substitution issue [Unknown]
  - Off label use [Unknown]

NARRATIVE: CASE EVENT DATE: 20170914
